FAERS Safety Report 6338012-3 (Version None)
Quarter: 2009Q3

REPORT INFORMATION
  Report Type: 
  Country: None (occurrence: None)
  Receive Date: 20090902
  Receipt Date: 20090821
  Transmission Date: 20100115
  Serious: Yes (Death)
  Sender: FDA-Public Use
  Company Number: DE-PFIZER INC-2009237374

PATIENT
  Age: 54 Year

DRUGS (8)
  1. LYRICA [Suspect]
     Indication: CEREBRAL INFARCTION
     Dosage: 75 MG, 1X/DAY
     Route: 048
     Dates: start: 20081201
  2. LORAZEPAM [Suspect]
  3. OMEP [Suspect]
  4. ACETYLSALICYLIC ACID [Concomitant]
     Dosage: 100 MG, 1X/DAY
  5. PANTOPRAZOL [Concomitant]
     Dosage: 20 MG, 1X/DAY
  6. SIMVASTATIN [Concomitant]
     Dosage: 20 MG, 1X/DAY
  7. VENLAFAXINE HCL [Concomitant]
     Dosage: 75 MG, 2X/DAY
  8. TAVOR [Concomitant]
     Dosage: 2.5 MG, 1X/DAY

REACTIONS (2)
  - COMPLETED SUICIDE [None]
  - INTENTIONAL OVERDOSE [None]
